FAERS Safety Report 18524566 (Version 1)
Quarter: 2020Q4

REPORT INFORMATION
  Report Type: Spontaneous
  Country: US (occurrence: US)
  Receive Date: 20201119
  Receipt Date: 20201119
  Transmission Date: 20210114
  Serious: Yes (Hospitalization)
  Sender: FDA-Public Use
  Company Number: US-PFIZER INC-2020456412

PATIENT
  Age: 70 Year
  Sex: Male

DRUGS (1)
  1. INLYTA [Suspect]
     Active Substance: AXITINIB
     Dosage: 5 MG, 3X/DAY
     Dates: start: 20200818

REACTIONS (4)
  - Ketoacidosis [Unknown]
  - Hyperkalaemia [Unknown]
  - Type 1 diabetes mellitus [Unknown]
  - Inappropriate schedule of product administration [Unknown]
